FAERS Safety Report 4665493-3 (Version None)
Quarter: 2005Q2

REPORT INFORMATION
  Report Type: 
  Country: None (occurrence: None)
  Receive Date: 20050519
  Receipt Date: 20041214
  Transmission Date: 20051028
  Serious: No
  Sender: FDA-Public Use
  Company Number: US-BRISTOL-MYERS SQUIBB COMPANY-12794483

PATIENT
  Age: 20 Year
  Sex: Female
  Weight: 52 kg

DRUGS (8)
  1. CYTOXAN [Suspect]
     Indication: BONE MARROW TRANSPLANT
     Route: 042
     Dates: start: 20041210, end: 20041210
  2. MESNEX [Concomitant]
     Indication: BONE MARROW TRANSPLANT
     Dates: start: 20041210
  3. CALCIUM CARBONATE [Concomitant]
  4. ERYTHROMYCIN [Concomitant]
  5. CASPOFUNGIN ACETATE [Concomitant]
  6. CEFEPIME HCL [Concomitant]
  7. GABAPENTIN [Concomitant]
  8. PREVACID [Concomitant]

REACTIONS (4)
  - FLUSHING [None]
  - HEADACHE [None]
  - HOT FLUSH [None]
  - PARAESTHESIA [None]
